FAERS Safety Report 14467970 (Version 1)
Quarter: 2018Q1

REPORT INFORMATION
  Report Type: Spontaneous
  Country: US (occurrence: US)
  Receive Date: 20180131
  Receipt Date: 20180131
  Transmission Date: 20180509
  Serious: No
  Sender: FDA-Public Use
  Company Number: US-PFIZER INC-2018036631

PATIENT
  Age: 70 Year
  Sex: Male
  Weight: 88.45 kg

DRUGS (1)
  1. LYRICA [Suspect]
     Active Substance: PREGABALIN
     Indication: NEURALGIA
     Dosage: 75 MG, 2X/DAY
     Dates: start: 201707

REACTIONS (6)
  - Blister [Unknown]
  - Peripheral swelling [Unknown]
  - Infection [Unknown]
  - Neck mass [Unknown]
  - Swelling [Not Recovered/Not Resolved]
  - Abdominal pain upper [Unknown]
